FAERS Safety Report 20942290 (Version 1)
Quarter: 2022Q2

REPORT INFORMATION
  Report Type: Report from Study
  Country: EG (occurrence: EG)
  Receive Date: 20220610
  Receipt Date: 20220610
  Transmission Date: 20220721
  Serious: Yes (Other)
  Sender: FDA-Public Use
  Company Number: EG-002147023-NVSC2022EG131769

PATIENT
  Age: 47 Year
  Sex: Male

DRUGS (8)
  1. AIMOVIG [Suspect]
     Active Substance: ERENUMAB-AOOE
     Indication: Migraine
     Dosage: 1 DOSAGE FORM, QMO, PERIOD OF 3 MONTHS
     Route: 058
     Dates: start: 202201, end: 202203
  2. AIMOVIG [Suspect]
     Active Substance: ERENUMAB-AOOE
     Dosage: 1 DOSAGE FORM, QMO, STARTED IN JUN 2022, PERIOD OF 6 MONTHS
     Route: 058
  3. CORDARONE [Concomitant]
     Active Substance: AMIODARONE HYDROCHLORIDE
     Indication: Heart rate abnormal
     Dosage: 1 DOSAGE FORM, QD,  STARTED 4 YEARS AGO
     Route: 065
  4. VASTAREL [Concomitant]
     Active Substance: TRIMETAZIDINE DIHYDROCHLORIDE
     Indication: Heart rate abnormal
     Dosage: UNK, 1 OR 2 TABLETS PER DAY, STARTED 4 YEARS AGO
     Route: 065
  5. MIDODRINE [Concomitant]
     Active Substance: MIDODRINE
     Indication: Heart rate abnormal
     Dosage: 2 DOSAGE FORM, QD,  STARTED 4 YEARS AGO
     Route: 065
  6. ASPIRIN [Concomitant]
     Active Substance: ASPIRIN
     Indication: Heart rate abnormal
     Dosage: 1 DOSAGE FORM, QD,  STARTED 4 YEARS AGO
     Route: 065
  7. AMIGRAWEST [Concomitant]
     Indication: Migraine
     Dosage: 1 DOSAGE FORM, QD WHEN NEDDED
     Route: 065
  8. INDERAL [Concomitant]
     Active Substance: PROPRANOLOL HYDROCHLORIDE
     Indication: Migraine
     Dosage: 1 DOSAGE FORM, QD, STARTED 11 MONTHS AGO
     Route: 065

REACTIONS (10)
  - Migraine [Recovering/Resolving]
  - Neck pain [Recovering/Resolving]
  - Arthralgia [Recovering/Resolving]
  - Eye pain [Recovering/Resolving]
  - Ear pain [Recovering/Resolving]
  - Facial pain [Recovering/Resolving]
  - Drug ineffective [Not Recovered/Not Resolved]
  - Headache [Not Recovered/Not Resolved]
  - Sinusitis [Not Recovered/Not Resolved]
  - Rhinorrhoea [Not Recovered/Not Resolved]

NARRATIVE: CASE EVENT DATE: 20220101
